FAERS Safety Report 10220026 (Version 1)
Quarter: 2014Q1

REPORT INFORMATION
  Report Type: Spontaneous
  Country: US (occurrence: None)
  Receive Date: 20140306
  Receipt Date: 20140306
  Transmission Date: 20141002
  Serious: Yes (Other)
  Sender: FDA-Public Use
  Company Number: 163-21880-13032203

PATIENT
  Age: 60 Year
  Sex: Male
  Weight: 86.6 kg

DRUGS (10)
  1. REVLIMID (LENALIDOMIDE) (25 MILLIGRAM, CAPSULES) [Suspect]
     Indication: PLASMA CELL MYELOMA
     Dosage: 25 MG, 21 IN 28 D, PO
     Route: 048
     Dates: start: 20121029, end: 20130312
  2. ACYCLOVIR (ACICLOVIR) (400 MILLIGRAM, CAPSULES) [Concomitant]
  3. DEXAMETHASONE (DEXAMETHASONE) (4 MILLIGRAM, TABLETS) [Concomitant]
  4. HYDROCODONE/ACETAMINOPHEN (REMEDEINE) (TABLETS) [Concomitant]
  5. BACTRIM (BACTRIM) (CAPSULES) [Concomitant]
  6. CALCIUM (CALCIUM) (500 MILLIGRAM, CHEWABLE TABLET) [Concomitant]
  7. WARFARIN SODIUM (WARFARIN SODIUM) (5 MILLIGRAM, TABLETS) [Concomitant]
  8. ZOMETA (ZOLEDRONIC ACID) (INJECTION) [Concomitant]
  9. ALLOPURINOL (ALLOPURINOL) (300 MILLIGRAM, TABLETS) [Concomitant]
  10. VELCADE (BORTEZOMIB) (3.5 MILLIGRAM, UNKNOWN) [Concomitant]

REACTIONS (3)
  - Blood calcium increased [None]
  - Dizziness [None]
  - Neuropathy peripheral [None]
